FAERS Safety Report 9261012 (Version 1)
Quarter: 2013Q2

REPORT INFORMATION
  Report Type: Spontaneous
  Country: US (occurrence: US)
  Receive Date: 20130429
  Receipt Date: 20130429
  Transmission Date: 20140414
  Serious: No
  Sender: FDA-Public Use
  Company Number: US-AMGEN-USASP2012031966

PATIENT
  Age: 57 Year
  Sex: Male

DRUGS (1)
  1. SENSIPAR [Suspect]
     Indication: HYPERPARATHYROIDISM SECONDARY
     Dosage: UNK
     Route: 048
     Dates: start: 201203

REACTIONS (3)
  - Headache [Recovered/Resolved]
  - Dry mouth [Recovering/Resolving]
  - Dysgeusia [Recovering/Resolving]
